FAERS Safety Report 7307574-1 (Version None)
Quarter: 2011Q1

REPORT INFORMATION
  Report Type: 
  Country: None (occurrence: None)
  Receive Date: 20110223
  Receipt Date: 20110223
  Transmission Date: 20110831
  Serious: Yes (Life-Threatening, Hospitalization, Disabling, Other)
  Sender: FDA-Public Use
  Company Number: None

PATIENT
  Age: 72 Year
  Sex: Male
  Weight: 108.8633 kg

DRUGS (1)
  1. ALCOHOL PREP PADS, MEDIUM 70% ISOPROPYL ALCOHOL, V/V TRIAD CAT. # 10-3 [Suspect]
     Indication: THERAPEUTIC SKIN CARE TOPICAL
     Dates: start: 20100929, end: 20110128

REACTIONS (2)
  - URINARY TRACT INFECTION [None]
  - SEPSIS [None]
